FAERS Safety Report 7655837-2 (Version None)
Quarter: 2011Q3

REPORT INFORMATION
  Report Type: 
  Country: None (occurrence: None)
  Receive Date: 20110804
  Receipt Date: 20110727
  Transmission Date: 20111222
  Serious: Yes (Death, Life-Threatening, Hospitalization)
  Sender: FDA-Public Use
  Company Number: FR-KINGPHARMUSA00001-K201100511

PATIENT
  Age: 90 Year
  Sex: Female

DRUGS (7)
  1. CEFUROXIME [Concomitant]
     Indication: WOUND INFECTION STAPHYLOCOCCAL
     Dosage: UNK
     Dates: start: 20101010, end: 20101023
  2. ALTACE [Suspect]
     Dosage: BETWEEN 2.5 MG AND 10 MG, QD
     Route: 048
     Dates: start: 20101207, end: 20101215
  3. ALTACE [Suspect]
     Dosage: UP TO 10 MG, QD
     Route: 048
     Dates: start: 20101022, end: 20101201
  4. ALTACE [Suspect]
     Dosage: UNK, W/HYDROCHLOROTHIAZIDE
     Route: 048
     Dates: start: 20101202, end: 20101206
  5. HYDROCHLOROTHIAZIDE [Suspect]
     Dosage: UNK, W/RAMIPRIL
     Route: 048
     Dates: start: 20101202, end: 20101206
  6. RIFAMPICIN [Suspect]
     Indication: WOUND INFECTION STAPHYLOCOCCAL
     Dosage: 600 MG, QD
     Route: 048
     Dates: start: 20101012, end: 20101019
  7. ALTACE [Suspect]
     Dosage: 5 MG, QD
     Route: 048
     Dates: start: 20090801, end: 20101020

REACTIONS (5)
  - GLOMERULAR FILTRATION RATE DECREASED [None]
  - CONVULSION [None]
  - DEATH [None]
  - BLOOD CREATININE INCREASED [None]
  - RENAL FAILURE ACUTE [None]
